FAERS Safety Report 9262620 (Version 1)
Quarter: 2013Q2

REPORT INFORMATION
  Report Type: Spontaneous
  Country: US (occurrence: None)
  Receive Date: 20130426
  Receipt Date: 20130426
  Transmission Date: 20140414
  Serious: Yes (Other)
  Sender: FDA-Public Use
  Company Number: None

PATIENT
  Age: 78 Year
  Sex: Female

DRUGS (1)
  1. LEUKINE [Suspect]
     Dosage: DAILY OR 14 DAYS. STRENGTH 250 MCG VIAL)
     Route: 058
     Dates: start: 201205, end: 201303

REACTIONS (3)
  - Alopecia [None]
  - Dry skin [None]
  - Arthralgia [None]
